FAERS Safety Report 10365416 (Version 2)
Quarter: 2014Q4

REPORT INFORMATION
  Report Type: Spontaneous
  Country: JP (occurrence: JP)
  Receive Date: 20140806
  Receipt Date: 20141017
  Transmission Date: 20150528
  Serious: Yes (Other)
  Sender: FDA-Public Use
  Company Number: PHHY2012JP133835

PATIENT

DRUGS (1)
  1. ZOMETA [Suspect]
     Active Substance: ZOLEDRONIC ACID
     Indication: METASTASES TO BONE
     Route: 042
     Dates: start: 200705

REACTIONS (5)
  - Abscess [Recovered/Resolved]
  - Swelling [Unknown]
  - Osteonecrosis of jaw [Recovered/Resolved]
  - Toothache [Unknown]
  - Tooth disorder [Unknown]

NARRATIVE: CASE EVENT DATE: 200803
